FAERS Safety Report 12505528 (Version 1)
Quarter: 2016Q2

REPORT INFORMATION
  Report Type: Spontaneous
  Country: DE (occurrence: DE)
  Receive Date: 20160628
  Receipt Date: 20160628
  Transmission Date: 20160815
  Serious: Yes (Life-Threatening, Hospitalization, Other)
  Sender: FDA-Public Use
  Company Number: DE-GILEAD-2016-0220206

PATIENT
  Age: 79 Year
  Sex: Male
  Weight: 76 kg

DRUGS (6)
  1. ZYDELIG [Suspect]
     Active Substance: IDELALISIB
     Indication: CHRONIC LYMPHOCYTIC LEUKAEMIA
     Dosage: 150 MG, BID
     Route: 048
     Dates: start: 20160405, end: 20160512
  2. ACICLOVIR [Concomitant]
     Active Substance: ACYCLOVIR
     Indication: ORAL HERPES
  3. MABTHERA [Concomitant]
     Active Substance: RITUXIMAB
     Dosage: 950 MG, UNK
     Dates: start: 20160419
  4. MABTHERA [Concomitant]
     Active Substance: RITUXIMAB
     Dosage: 700 MG, UNK
     Dates: start: 20160308
  5. MABTHERA [Concomitant]
     Active Substance: RITUXIMAB
     Dosage: 950 MG, UNK
     Dates: start: 20160405
  6. MABTHERA [Concomitant]
     Active Substance: RITUXIMAB
     Dosage: 950 MG, UNK
     Dates: start: 20160322

REACTIONS (2)
  - Pneumonitis chemical [Recovering/Resolving]
  - Acute kidney injury [Recovering/Resolving]

NARRATIVE: CASE EVENT DATE: 20160512
